FAERS Safety Report 5673167-5 (Version None)
Quarter: 2008Q1

REPORT INFORMATION
  Report Type: 
  Country: None (occurrence: None)
  Receive Date: 20080319
  Receipt Date: 20080314
  Transmission Date: 20080703
  Serious: Yes (Hospitalization)
  Sender: FDA-Public Use
  Company Number: US-BRISTOL-MYERS SQUIBB COMPANY-14116065

PATIENT
  Age: 49 Year
  Sex: Female

DRUGS (19)
  1. DIDANOSINE [Suspect]
     Indication: HIV INFECTION
     Route: 048
     Dates: start: 20071004
  2. PREZISTA [Suspect]
     Indication: HIV INFECTION
     Route: 048
     Dates: start: 20070921
  3. TMC125 [Suspect]
     Indication: HIV INFECTION
     Dosage: DOSE FORM=TABLETS
     Route: 048
     Dates: start: 20070921
  4. TRUVADA [Suspect]
     Indication: HIV INFECTION
     Route: 048
     Dates: start: 20071004
  5. RITONAVIR [Suspect]
     Indication: HIV INFECTION
     Route: 048
     Dates: start: 20070902
  6. ROSUVASTATIN CALCIUM [Concomitant]
     Route: 048
     Dates: start: 20061003
  7. LISINOPRIL [Concomitant]
     Route: 048
     Dates: start: 20060501, end: 20080101
  8. BUPROPION HCL [Concomitant]
     Route: 048
     Dates: start: 20050601
  9. PROZAC [Concomitant]
     Route: 048
     Dates: start: 20050601
  10. ALBUTEROL [Concomitant]
     Route: 048
  11. ADVAIR DISKUS 100/50 [Concomitant]
     Route: 055
     Dates: start: 20061206
  12. ASPIRIN [Concomitant]
     Route: 048
     Dates: start: 20061003
  13. ESOMEPRAZOLE MAGNESIUM [Concomitant]
     Route: 048
     Dates: start: 20061206
  14. HYDROCHLOROTHIAZIDE [Concomitant]
     Route: 048
     Dates: start: 20060501
  15. CENTRUM [Concomitant]
     Dosage: DOSE FORM=TABLET
     Route: 048
     Dates: start: 20070801
  16. ZOLPIDEM [Concomitant]
     Route: 048
     Dates: start: 20070701
  17. GABAPENTIN [Concomitant]
     Route: 048
     Dates: start: 20070924
  18. TYLENOL (CAPLET) [Concomitant]
     Dosage: DOSE FORM=TABLETS
     Route: 048
     Dates: start: 20070924
  19. LASIX [Concomitant]
     Route: 048
     Dates: start: 20071210

REACTIONS (9)
  - BLOOD ALBUMIN DECREASED [None]
  - CARDIAC MURMUR [None]
  - CARDIAC TAMPONADE [None]
  - CARDIOMEGALY [None]
  - CONGESTIVE CARDIOMYOPATHY [None]
  - PERICARDIAL EFFUSION [None]
  - PLEURAL EFFUSION [None]
  - RESPIRATORY DISTRESS [None]
  - RESPIRATORY RATE INCREASED [None]
